FAERS Safety Report 6519342-9 (Version None)
Quarter: 2009Q4

REPORT INFORMATION
  Report Type: 
  Country: None (occurrence: None)
  Receive Date: 20091228
  Receipt Date: 20091214
  Transmission Date: 20100525
  Serious: Yes (Other)
  Sender: FDA-Public Use
  Company Number: SE-PFIZER INC-2009294218

PATIENT

DRUGS (1)
  1. PREDNISOLONE AND PREDNISOLONE STEAGLATE [Suspect]
     Indication: POLYMYALGIA RHEUMATICA

REACTIONS (2)
  - ALCOHOL INTERACTION [None]
  - PALPITATIONS [None]
